FAERS Safety Report 6090975-X (Version None)
Quarter: 2009Q1

REPORT INFORMATION
  Report Type: 
  Country: None (occurrence: None)
  Receive Date: 20090220
  Receipt Date: 20090220
  Transmission Date: 20090719
  Serious: No
  Sender: FDA-Public Use
  Company Number: None

PATIENT
  Sex: Female
  Weight: 92.27 kg

DRUGS (5)
  1. GABAPENTIN [Suspect]
     Dosage: 300MG CAPSULE 600 MG AS DIRECTED ORAL
     Route: 048
     Dates: start: 20081223, end: 20090219
  2. HALFLYTELY AND BISACODYL TABLETS [Concomitant]
  3. MVI (MULTIVITAMINS) [Concomitant]
  4. SIMVASTATIN [Concomitant]
  5. VICOPROFEN [Concomitant]

REACTIONS (2)
  - DIZZINESS [None]
  - GASTROINTESTINAL DISORDER [None]
